FAERS Safety Report 6274943-0 (Version None)
Quarter: 2009Q3

REPORT INFORMATION
  Report Type: 
  Country: None (occurrence: None)
  Receive Date: 20090721
  Receipt Date: 20090716
  Transmission Date: 20100115
  Serious: Yes (Other)
  Sender: FDA-Public Use
  Company Number: CA-WYE-G03777209

PATIENT
  Age: 53 Year
  Sex: Female

DRUGS (5)
  1. EFFEXOR XR [Suspect]
     Route: 048
     Dates: start: 20080401, end: 20080101
  2. VENLAFAXINE HYDROCHLORIDE [Suspect]
     Route: 048
     Dates: start: 20080101
  3. ROBAXACET [Concomitant]
  4. AMITRIPTYLINE [Concomitant]
  5. TRAMADOL HCL [Concomitant]

REACTIONS (1)
  - MACULAR DEGENERATION [None]
